FAERS Safety Report 8062719-3 (Version None)
Quarter: 2012Q1

REPORT INFORMATION
  Report Type: 
  Country: None (occurrence: None)
  Receive Date: 20120123
  Receipt Date: 20120112
  Transmission Date: 20120608
  Serious: Yes (Other)
  Sender: FDA-Public Use
  Company Number: GB-NOVOPROD-343034

PATIENT
  Age: 12 Year
  Sex: Female
  Weight: 38 kg

DRUGS (3)
  1. LEVEMIR [Suspect]
     Indication: TYPE 1 DIABETES MELLITUS
     Dosage: 14 IU, UNK
     Route: 058
     Dates: start: 20111026, end: 20111031
  2. LEVOTHYROXINE SODIUM [Concomitant]
     Indication: HYPOTHYROIDISM
     Dosage: 12.5 A?G, UNK
  3. NOVORAPID [Concomitant]
     Indication: DIABETES MELLITUS
     Dosage: UNK
     Route: 058
     Dates: start: 20111026

REACTIONS (4)
  - SKIN LESION [None]
  - SKIN REACTION [None]
  - DERMATITIS [None]
  - ERYTHEMA [None]
